FAERS Safety Report 24565569 (Version 2)
Quarter: 2024Q4

REPORT INFORMATION
  Report Type: Spontaneous
  Country: IN (occurrence: IN)
  Receive Date: 20241030
  Receipt Date: 20241112
  Transmission Date: 20250115
  Serious: Yes (Death, Hospitalization, Other)
  Sender: RANBAXY
  Company Number: IN-SUN PHARMACEUTICAL INDUSTRIES LTD-2024R1-475864

PATIENT
  Sex: Female
  Weight: 4.06 kg

DRUGS (4)
  1. HYDROCHLOROTHIAZIDE [Suspect]
     Active Substance: HYDROCHLOROTHIAZIDE
     Indication: Hypoglycaemia
     Dosage: UNK
     Route: 065
  2. OCTREOTIDE [Suspect]
     Active Substance: OCTREOTIDE
     Indication: Hypoglycaemia
     Dosage: 15 MICROGRAM/KILOGRAM, DAILY
     Route: 058
  3. DEXTROSE [Suspect]
     Active Substance: DEXTROSE MONOHYDRATE
     Indication: Hypoglycaemia
     Dosage: 14 MILLIGRAM/KILOGRAM, OF BODY WEIGHT/MIN
     Route: 051
  4. DIAZOXIDE [Suspect]
     Active Substance: DIAZOXIDE
     Indication: Hypoglycaemia
     Dosage: 15 MILLIGRAM/KILOGRAM, DAILY
     Route: 065

REACTIONS (3)
  - Disease recurrence [Fatal]
  - Condition aggravated [Fatal]
  - Therapy non-responder [Fatal]
